FAERS Safety Report 9151306 (Version 1)
Quarter: 2013Q1

REPORT INFORMATION
  Report Type: Spontaneous
  Country: US (occurrence: US)
  Receive Date: 20130308
  Receipt Date: 20130308
  Transmission Date: 20140127
  Serious: No
  Sender: FDA-Public Use
  Company Number: US-GLAXOSMITHKLINE-A0977664A

PATIENT
  Age: 73 Year
  Sex: Female

DRUGS (4)
  1. NICOTINE [Suspect]
     Indication: EX-TOBACCO USER
     Route: 062
  2. KROGER NICOTINE [Suspect]
     Indication: EX-TOBACCO USER
     Route: 062
  3. KROGER NICOTINE [Suspect]
     Indication: EX-TOBACCO USER
     Route: 062
  4. KROGER NICOTINE [Suspect]
     Indication: EX-TOBACCO USER
     Route: 062

REACTIONS (5)
  - Intentional drug misuse [Unknown]
  - Product quality issue [Unknown]
  - Choking sensation [Not Recovered/Not Resolved]
  - Cough [Not Recovered/Not Resolved]
  - Drug administration error [Unknown]
